FAERS Safety Report 5285788-2 (Version None)
Quarter: 2007Q1

REPORT INFORMATION
  Report Type: 
  Country: None (occurrence: None)
  Receive Date: 20070126
  Receipt Date: 20061030
  Transmission Date: 20070707
  Serious: No
  Sender: FDA-Public Use
  Company Number: 2006CT001082

PATIENT
  Age: 56 Year
  Sex: Female
  Weight: 65.318 kg

DRUGS (15)
  1. VENTAVIS [Suspect]
     Indication: PULMONARY HYPERTENSION
     Dosage: 5 UG;5XD;INH
     Route: 055
     Dates: start: 20061011, end: 20061023
  2. DARBEPOETIN ALFA [Concomitant]
  3. VITAMIN E [Concomitant]
  4. VITAMIN D [Concomitant]
  5. VITAMIN CAP [Concomitant]
  6. PERSANTINE [Concomitant]
  7. TESSALON [Concomitant]
  8. IRON [Concomitant]
  9. ZANTAC [Concomitant]
  10. CALCIUM [Concomitant]
  11. SILDENAFIL CITRATE [Concomitant]
  12. PREMPRO [Concomitant]
  13. METOCLOPRAMIDE [Concomitant]
  14. LASIX [Concomitant]
  15. PANTOPRAZOLE [Concomitant]

REACTIONS (2)
  - COUGH [None]
  - LUNG DISORDER [None]
